FAERS Safety Report 4709151-5 (Version None)
Quarter: 2005Q3

REPORT INFORMATION
  Report Type: 
  Country: None (occurrence: None)
  Receive Date: 20050708
  Receipt Date: 20050624
  Transmission Date: 20060218
  Serious: Yes (Other)
  Sender: FDA-Public Use
  Company Number: DE-JNJFOC-20050607093

PATIENT
  Age: 54 Year
  Sex: Female

DRUGS (15)
  1. HALDOL [Suspect]
     Route: 049
  2. HALDOL [Suspect]
     Indication: DRUG USE FOR UNKNOWN INDICATION
     Route: 049
  3. NEUROCIL [Interacting]
     Route: 049
  4. NEUROCIL [Interacting]
     Route: 049
  5. NEUROCIL [Interacting]
     Route: 049
  6. NEUROCIL [Suspect]
     Indication: DRUG USE FOR UNKNOWN INDICATION
     Route: 049
  7. CLOZAPINE [Suspect]
     Route: 049
  8. LEPONEX [Interacting]
     Route: 049
  9. CLOZAPINE [Interacting]
     Route: 049
  10. LEPONEX [Interacting]
     Route: 049
  11. LEPONEX [Interacting]
     Route: 049
  12. LEPONEX [Interacting]
     Indication: DRUG USE FOR UNKNOWN INDICATION
     Route: 049
  13. TAVOR [Concomitant]
     Route: 049
  14. TAVOR [Concomitant]
     Route: 049
  15. BVK VITAMIN [Concomitant]
     Dosage: 1 KPS = 1 DOSE

REACTIONS (5)
  - ALANINE AMINOTRANSFERASE INCREASED [None]
  - ASPARTATE AMINOTRANSFERASE INCREASED [None]
  - DRUG INTERACTION [None]
  - GAMMA-GLUTAMYLTRANSFERASE INCREASED [None]
  - LIVER FUNCTION TEST ABNORMAL [None]
